APPROVED DRUG PRODUCT: OCTREOTIDE ACETATE
Active Ingredient: OCTREOTIDE ACETATE
Strength: EQ 0.05MG BASE/ML
Dosage Form/Route: INJECTABLE;INJECTION
Application: A077329 | Product #001
Applicant: SUN PHARMACEUTICAL INDUSTRIES LTD
Approved: Mar 4, 2008 | RLD: No | RS: No | Type: DISCN